FAERS Safety Report 10192586 (Version 2)
Quarter: 2014Q2

REPORT INFORMATION
  Report Type: Spontaneous
  Country: GB (occurrence: GB)
  Receive Date: 20140523
  Receipt Date: 20140626
  Transmission Date: 20141212
  Serious: Yes (Other)
  Sender: FDA-Public Use
  Company Number: GB-PFIZER INC-2014140650

PATIENT
  Age: 72 Year
  Sex: Female

DRUGS (2)
  1. AMLODIPINE BESILATE [Suspect]
     Indication: HYPERTENSION
     Dosage: UNK
     Route: 048
     Dates: start: 20140203, end: 20140303
  2. CEFALEXIN [Concomitant]
     Indication: URINARY TRACT INFECTION
     Dosage: 125 MG, UNK

REACTIONS (6)
  - Blepharitis [Recovered/Resolved with Sequelae]
  - Eye disorder [Not Recovered/Not Resolved]
  - Paraesthesia [Not Recovered/Not Resolved]
  - Paraesthesia [Not Recovered/Not Resolved]
  - Eyelid oedema [Unknown]
  - Local swelling [Unknown]
